FAERS Safety Report 6623443-4 (Version None)
Quarter: 2010Q1

REPORT INFORMATION
  Report Type: 
  Country: None (occurrence: None)
  Receive Date: 20100305
  Receipt Date: 20100219
  Transmission Date: 20100710
  Serious: Yes (Death)
  Sender: FDA-Public Use
  Company Number: 2010SA012078

PATIENT

DRUGS (13)
  1. FLUDARABINE PHOSPHATE [Suspect]
     Indication: HEPATOSPLENIC T-CELL LYMPHOMA
     Dosage: 25 MILLIGRAM(S)/SQUARE METER;ORAL
     Route: 048
  2. CAMPATH [Suspect]
     Indication: HEPATOSPLENIC T-CELL LYMPHOMA
     Dosage: SEE IMAGE
     Route: 042
  3. CYCLOPHOSPHAMIDE [Suspect]
     Indication: HEPATOSPLENIC T-CELL LYMPHOMA
     Dosage: 600 MILLIGRAM(S)/SQUARE METER
  4. DOXORUBICIN HCL [Suspect]
     Indication: HEPATOSPLENIC T-CELL LYMPHOMA
     Dosage: 50 MILLIGRAM(S)/SQUARE METER
  5. CLEMASTINE FUMARATE [Concomitant]
  6. ACETAMINOPHEN [Concomitant]
  7. PREDNISONE [Concomitant]
  8. SERTONIN [Concomitant]
  9. ANTAGONISTS [Concomitant]
  10. SULFAMETHOXAZOLE AND TRIMETHOPRIM [Concomitant]
  11. FAMCICLOVIR [Concomitant]
  12. GRANULOCYTE COLONY STIMULATING FACTOR [Concomitant]
  13. PREV MEDS [Concomitant]

REACTIONS (2)
  - CEREBRAL HAEMORRHAGE [None]
  - PANCYTOPENIA [None]
